FAERS Safety Report 7291536-7 (Version None)
Quarter: 2011Q1

REPORT INFORMATION
  Report Type: 
  Country: None (occurrence: None)
  Receive Date: 20110214
  Receipt Date: 20110203
  Transmission Date: 20110831
  Serious: Yes (Congenital Anomaly)
  Sender: FDA-Public Use
  Company Number: FR-ELI_LILLY_AND_COMPANY-FR201102000900

PATIENT
  Sex: Female
  Weight: 2.74 kg

DRUGS (3)
  1. OXYTOCICS [Concomitant]
     Indication: LABOUR INDUCTION
     Route: 064
     Dates: start: 20091201, end: 20091201
  2. CYMBALTA [Suspect]
     Indication: DEPRESSION
     Dosage: UNK, UNKNOWN
     Route: 064
     Dates: start: 20090301, end: 20090901
  3. PROZAC [Suspect]
     Indication: DEPRESSION
     Dosage: 20 MG, DAILY (1/D)
     Route: 064
     Dates: start: 20090901, end: 20091216

REACTIONS (3)
  - CORNEAL LEUKOMA [None]
  - MICROPHTHALMOS [None]
  - DRUG EXPOSURE DURING PREGNANCY [None]
